FAERS Safety Report 6194150-X (Version None)
Quarter: 2009Q2

REPORT INFORMATION
  Report Type: 
  Country: None (occurrence: None)
  Receive Date: 20090518
  Receipt Date: 20090514
  Transmission Date: 20091009
  Serious: Yes (Death, Hospitalization)
  Sender: FDA-Public Use
  Company Number: GR-ABBOTT-08P-066-0493782-00

PATIENT
  Sex: Male
  Weight: 67 kg

DRUGS (9)
  1. ZEMPLAR [Suspect]
     Indication: HYPERPARATHYROIDISM SECONDARY
     Route: 042
     Dates: start: 20070616, end: 20080805
  2. PLENDIL [Concomitant]
     Indication: HYPERTENSION
     Route: 048
  3. FILICINE [Concomitant]
     Indication: ANAEMIA
     Route: 048
  4. RENAGEL [Concomitant]
     Indication: BLOOD PHOSPHORUS ABNORMAL
     Route: 048
  5. TENORMIN [Concomitant]
     Indication: HYPERTENSION
     Route: 048
  6. MIMPARA [Concomitant]
     Indication: HYPERPARATHYROIDISM SECONDARY
     Route: 048
  7. EVIOL [Concomitant]
     Indication: VITAMIN SUPPLEMENTATION
     Route: 048
  8. BIOTINE [Concomitant]
     Indication: VITAMIN SUPPLEMENTATION
     Route: 042
  9. NEUROBION [Concomitant]
     Indication: VITAMIN SUPPLEMENTATION
     Route: 042

REACTIONS (1)
  - CARDIAC ARREST [None]
